FAERS Safety Report 6992657-6 (Version None)
Quarter: 2010Q3

REPORT INFORMATION
  Report Type: 
  Country: None (occurrence: None)
  Receive Date: 20100915
  Receipt Date: 20100908
  Transmission Date: 20110219
  Serious: Yes (Life-Threatening)
  Sender: FDA-Public Use
  Company Number: TCI2010A02675

PATIENT
  Age: 71 Year
  Sex: Male

DRUGS (12)
  1. ACTOS [Suspect]
     Indication: TYPE 2 DIABETES MELLITUS
     Dosage: 30 MG (30 MG, 1 IN 1 D) PER ORAL
     Route: 048
     Dates: start: 20081216
  2. MASATON (ALLOPURINOL) [Concomitant]
  3. OLMESARTAN MEDOXOMIL [Concomitant]
  4. ALONG (BETAXOLOL HYDROCHLORIDE) [Concomitant]
  5. PRAVASTATIN SODIUM [Concomitant]
  6. METFORMIN HYDROCHLORIDE [Concomitant]
  7. GLIMICRON (GLICLAZIDE) [Concomitant]
  8. BENIDIPINE HYDROCHLORIDE TYK (BENIDIPINE HYDROCHLORIDE) [Concomitant]
  9. MAGMITT (MAGNESIUM OXIDE) [Concomitant]
  10. CONIPROS (BENIDIPINE HYDROCHLORIDE) [Concomitant]
  11. MAGNESIUM OXIDE MOCHIDA (MAGNESIUM OXIDE) [Concomitant]
  12. TAIPROTON (LANSOPRAZOLE) [Concomitant]

REACTIONS (3)
  - ANGINA PECTORIS [None]
  - CORONARY ARTERY STENOSIS [None]
  - INSOMNIA [None]
